FAERS Safety Report 9007860 (Version 1)
Quarter: 2013Q1

REPORT INFORMATION
  Report Type: Spontaneous
  Country: US (occurrence: US)
  Receive Date: 20130110
  Receipt Date: 20130110
  Transmission Date: 20140127
  Serious: No
  Sender: FDA-Public Use
  Company Number: US-009507513-1210USA010577

PATIENT
  Sex: Male

DRUGS (2)
  1. PEGINTRON [Suspect]
     Indication: HEPATITIS C
     Dosage: 150 MICROGRAM PER 0.5ML, QW
     Route: 058
     Dates: start: 20120522
  2. RIBAPAK [Suspect]
     Dosage: 400 MG, UNK

REACTIONS (2)
  - Fatigue [Unknown]
  - Pyrexia [Recovered/Resolved]
